FAERS Safety Report 23313711 (Version 7)
Quarter: 2025Q2

REPORT INFORMATION
  Report Type: Spontaneous
  Country: US (occurrence: US)
  Receive Date: 20231219
  Receipt Date: 20250605
  Transmission Date: 20250717
  Serious: Yes (Other)
  Sender: PFIZER
  Company Number: US-PFIZER INC-202300444260

PATIENT
  Age: 83 Year
  Sex: Female
  Weight: 56.7 kg

DRUGS (3)
  1. PREMARIN [Suspect]
     Active Substance: ESTROGENS, CONJUGATED
     Indication: Hormone replacement therapy
     Dates: start: 1980
  2. PREMARIN [Suspect]
     Active Substance: ESTROGENS, CONJUGATED
     Dates: end: 2022
  3. PREMARIN [Suspect]
     Active Substance: ESTROGENS, CONJUGATED
     Dates: start: 2022

REACTIONS (5)
  - Hysterectomy [Unknown]
  - Hypothyroidism [Unknown]
  - Hyperhidrosis [Unknown]
  - Malaise [Unknown]
  - Headache [Unknown]
